FAERS Safety Report 7462331-0 (Version None)
Quarter: 2011Q2

REPORT INFORMATION
  Report Type: 
  Country: None (occurrence: None)
  Receive Date: 20110506
  Receipt Date: 20110421
  Transmission Date: 20111010
  Serious: Yes (Hospitalization)
  Sender: FDA-Public Use
  Company Number: US-JNJFOC-20110411531

PATIENT
  Sex: Male

DRUGS (6)
  1. KALETRA [Concomitant]
     Indication: ANTIVIRAL PROPHYLAXIS
     Route: 065
  2. NORCO [Concomitant]
     Indication: BREAKTHROUGH PAIN
     Dosage: UPTO 8 TABLETS AS NEEDED
     Route: 048
  3. FENTANYL-100 [Suspect]
     Indication: PAIN
     Route: 062
  4. FENTANYL-100 [Suspect]
     Indication: PAIN
  5. COMBIVIR [Concomitant]
     Indication: ANTIVIRAL PROPHYLAXIS
     Route: 065
  6. FENTANYL-100 [Suspect]
     Dosage: NDC-0781-7242-55
     Route: 062

REACTIONS (6)
  - CONFUSIONAL STATE [None]
  - PRODUCT QUALITY ISSUE [None]
  - DRUG DOSE OMISSION [None]
  - OVERDOSE [None]
  - DIZZINESS [None]
  - INAPPROPRIATE SCHEDULE OF DRUG ADMINISTRATION [None]
